FAERS Safety Report 23471142 (Version 1)
Quarter: 2024Q1

REPORT INFORMATION
  Report Type: Spontaneous
  Country: None (occurrence: DE)
  Receive Date: 20240202
  Receipt Date: 20240202
  Transmission Date: 20240410
  Serious: Yes (Other)
  Sender: FDA-Public Use
  Company Number: DE-Ascend Therapeutics US, LLC-2152486

PATIENT
  Age: 47 Year
  Sex: Female
  Weight: 55 kg

DRUGS (3)
  1. ESTROGEL [Suspect]
     Active Substance: ESTRADIOL
     Indication: Hormone replacement therapy
     Route: 065
     Dates: start: 2023
  2. ESTRADIOL [Suspect]
     Active Substance: ESTRADIOL
     Route: 065
     Dates: start: 2023
  3. PROGESTERONE [Suspect]
     Active Substance: PROGESTERONE
     Route: 065
     Dates: start: 2023

REACTIONS (10)
  - Syncope [Unknown]
  - Hormone level abnormal [Unknown]
  - Restlessness [Unknown]
  - Chills [Unknown]
  - Sleep disorder [Unknown]
  - Depressed mood [Unknown]
  - Hot flush [Unknown]
  - Blood pressure fluctuation [Unknown]
  - Prescribed underdose [Unknown]
  - Wrong technique in product usage process [Unknown]
